FAERS Safety Report 4543148-3 (Version None)
Quarter: 2004Q4

REPORT INFORMATION
  Report Type: 
  Country: None (occurrence: None)
  Receive Date: 20041228
  Receipt Date: 20041208
  Transmission Date: 20050328
  Serious: Yes (Hospitalization)
  Sender: FDA-Public Use
  Company Number: 601591

PATIENT
  Age: 16 Year
  Sex: Male

DRUGS (2)
  1. RECOMBINATE [Suspect]
     Indication: COAGULATION FACTOR VIII LEVEL DECREASED
     Dosage: 2000 UNITS; PRN; INTRAVENOUS
     Route: 042
     Dates: start: 19980323, end: 20040909
  2. RECOMBINATE [Suspect]

REACTIONS (2)
  - ANTI FACTOR VIII ANTIBODY POSITIVE [None]
  - HAEMATOMA [None]
